FAERS Safety Report 23530602 (Version 1)
Quarter: 2024Q1

REPORT INFORMATION
  Report Type: Report from Study
  Country: FR (occurrence: FR)
  Receive Date: 20240216
  Receipt Date: 20240216
  Transmission Date: 20240409
  Serious: Yes (Life-Threatening, Hospitalization)
  Sender: FDA-Public Use
  Company Number: FR-CELLTRION INC.-2023FR018360

PATIENT

DRUGS (13)
  1. RITUXIMAB [Suspect]
     Active Substance: RITUXIMAB
     Indication: Diffuse large B-cell lymphoma
     Dosage: 660 MILLIGRAM, EVERY 3 WEEKS, ONGOING
     Route: 042
     Dates: start: 20230727
  2. EPCORITAMAB [Suspect]
     Active Substance: EPCORITAMAB
     Indication: Diffuse large B-cell lymphoma
     Dosage: 0.16 MG, TOTAL
     Route: 058
     Dates: start: 20230727
  3. EPCORITAMAB [Suspect]
     Active Substance: EPCORITAMAB
     Dosage: 0.16 MG, PRIMING DOSE, C1, D1, TOTAL
     Route: 058
     Dates: start: 20230728, end: 20230728
  4. EPCORITAMAB [Suspect]
     Active Substance: EPCORITAMAB
     Dosage: 0.8 MG, INTERMEDIATE DOSE, C1, D8, TOTAL
     Route: 058
     Dates: start: 20230804, end: 20230804
  5. EPCORITAMAB [Suspect]
     Active Substance: EPCORITAMAB
     Dosage: 48 MG, FULL DOSE, C1, D15, TOTAL
     Route: 058
     Dates: start: 20230811, end: 20230811
  6. EPCORITAMAB [Suspect]
     Active Substance: EPCORITAMAB
     Dosage: 48 MG, C2-4, D1, 8 + 15, EVERY 1 WEEKS, ONGOING
     Route: 058
     Dates: start: 20230818
  7. PREDNISONE [Suspect]
     Active Substance: PREDNISONE
     Indication: Diffuse large B-cell lymphoma
     Dosage: 100 MG, DAY 1-5, EVERY 3 WEEKS, EVERY 1 DAY, ONGOING
     Route: 048
     Dates: start: 20230727
  8. CYCLOPHOSPHAMIDE [Suspect]
     Active Substance: CYCLOPHOSPHAMIDE
     Indication: Diffuse large B-cell lymphoma
     Dosage: 1325 MG, EVERY 3 WEEKS, ONGOING
     Route: 042
     Dates: start: 20230727
  9. VINCRISTINE [Suspect]
     Active Substance: VINCRISTINE
     Indication: Diffuse large B-cell lymphoma
     Dosage: 2 MG, EVERY 3 WEEKS, ONGOING
     Route: 042
     Dates: start: 20230727
  10. DOXORUBICIN [Suspect]
     Active Substance: DOXORUBICIN
     Indication: Diffuse large B-cell lymphoma
     Dosage: 88.4 MG, EVERY 3 WEEKS
     Route: 042
     Dates: start: 20230727, end: 20230727
  11. DOXORUBICIN [Suspect]
     Active Substance: DOXORUBICIN
     Dosage: 87.8 MG, EVERY 3 WEEKS, ONGOING
     Route: 042
     Dates: start: 20230818
  12. POLYETHYLENE GLYCOLS [Concomitant]
     Active Substance: POLYETHYLENE GLYCOLS
     Indication: Constipation prophylaxis
     Dosage: 2 BAG, 2/DAYS, START DATE: 2023
     Route: 065
     Dates: start: 2023
  13. PANTOPRAZOLE [Concomitant]
     Active Substance: PANTOPRAZOLE
     Indication: Gastrointestinal disorder prophylaxis
     Dosage: 40 MG, 2/DAYS, START DATE: 2023
     Route: 065
     Dates: start: 2023

REACTIONS (4)
  - Stomatitis [Not Recovered/Not Resolved]
  - Oral pain [Unknown]
  - Odynophagia [Unknown]
  - Dehydration [Unknown]

NARRATIVE: CASE EVENT DATE: 20230828
